FAERS Safety Report 6898837-2 (Version None)
Quarter: 2010Q3

REPORT INFORMATION
  Report Type: 
  Country: None (occurrence: None)
  Receive Date: 20100802
  Receipt Date: 20071213
  Transmission Date: 20110219
  Serious: Yes (Hospitalization)
  Sender: FDA-Public Use
  Company Number: US-PFIZER INC-2007094733

PATIENT
  Sex: Male
  Weight: 77.1 kg

DRUGS (1)
  1. LYRICA [Suspect]
     Indication: DIABETIC NEUROPATHY
     Dosage: BID
     Route: 048
     Dates: start: 20051107, end: 20071122

REACTIONS (5)
  - ASTHENIA [None]
  - CHILLS [None]
  - EOSINOPHILIA [None]
  - PYREXIA [None]
  - SYNCOPE [None]
